FAERS Safety Report 17059413 (Version 1)
Quarter: 2019Q4

REPORT INFORMATION
  Report Type: Spontaneous
  Country: US (occurrence: US)
  Receive Date: 20191023
  Receipt Date: 20191023
  Transmission Date: 20200122
  Serious: No
  Sender: FDA-Public Use
  Company Number: None

PATIENT
  Age: 57 Year
  Sex: Female

DRUGS (1)
  1. AFINITOR [Suspect]
     Active Substance: EVEROLIMUS
     Route: 048
     Dates: start: 20191016

REACTIONS (7)
  - Back pain [None]
  - Chills [None]
  - Nausea [None]
  - Decreased appetite [None]
  - Muscle spasms [None]
  - Influenza like illness [None]
  - Weight decreased [None]

NARRATIVE: CASE EVENT DATE: 20191023
